FAERS Safety Report 7366038-X (Version None)
Quarter: 2011Q1

REPORT INFORMATION
  Report Type: 
  Country: None (occurrence: None)
  Receive Date: 20110322
  Receipt Date: 20110308
  Transmission Date: 20110831
  Serious: Yes (Hospitalization)
  Sender: FDA-Public Use
  Company Number: US-JNJFOC-20061202935

PATIENT
  Sex: Male
  Weight: 47.4 kg

DRUGS (11)
  1. MESALAMINE [Concomitant]
     Route: 048
  2. PENTASA [Concomitant]
  3. PRILOSEC [Concomitant]
  4. COLACE [Concomitant]
  5. INFLIXIMAB [Suspect]
     Route: 042
  6. INFLIXIMAB [Suspect]
     Dosage: TOTAL 3 DOSES
     Route: 042
  7. METRONIDAZOLE [Concomitant]
  8. CIPRO [Concomitant]
  9. INFLIXIMAB [Suspect]
     Indication: CROHN'S DISEASE
     Route: 042
  10. MULTI-VITAMINS [Concomitant]
  11. MERCAPTOPURINE [Concomitant]

REACTIONS (2)
  - ANAL ABSCESS [None]
  - FISTULA [None]
